FAERS Safety Report 6591400-2 (Version None)
Quarter: 2010Q1

REPORT INFORMATION
  Report Type: 
  Country: None (occurrence: None)
  Receive Date: 20100219
  Receipt Date: 20100211
  Transmission Date: 20100710
  Serious: Yes (Hospitalization)
  Sender: FDA-Public Use
  Company Number: US-AMGEN-QUU388798

PATIENT
  Sex: Male
  Weight: 108.1 kg

DRUGS (6)
  1. NPLATE [Suspect]
     Indication: IDIOPATHIC THROMBOCYTOPENIC PURPURA
     Dates: start: 20090910, end: 20091117
  2. METOPROLOL TARTRATE [Concomitant]
  3. VASOTEC [Concomitant]
  4. ASPIRIN [Concomitant]
  5. TEMAZEPAM [Concomitant]
  6. PREDNISONE [Concomitant]
     Dates: start: 20090907

REACTIONS (4)
  - DYSPNOEA [None]
  - INTERSTITIAL LUNG DISEASE [None]
  - LUNG INFILTRATION [None]
  - PULMONARY FIBROSIS [None]
